FAERS Safety Report 17472265 (Version 1)
Quarter: 2020Q1

REPORT INFORMATION
  Report Type: Spontaneous
  Country: GB (occurrence: GB)
  Receive Date: 20200228
  Receipt Date: 20200228
  Transmission Date: 20200409
  Serious: Yes (Congenital Anomaly)
  Sender: FDA-Public Use
  Company Number: GB-009507513-2002GBR006940

PATIENT

DRUGS (1)
  1. NEXPLANON [Suspect]
     Active Substance: ETONOGESTREL
     Dosage: 1 DOSAGE FORM
     Route: 064
     Dates: start: 201602, end: 20190313

REACTIONS (2)
  - Foetal exposure during pregnancy [Unknown]
  - Cerebral cyst [Recovered/Resolved]
